FAERS Safety Report 7583149-4 (Version None)
Quarter: 2011Q2

REPORT INFORMATION
  Report Type: 
  Country: None (occurrence: None)
  Receive Date: 20110630
  Receipt Date: 20110622
  Transmission Date: 20111010
  Serious: Yes (Disabling)
  Sender: FDA-Public Use
  Company Number: PT-SANOFI-AVENTIS-2011SA040120

PATIENT
  Age: 39 Year
  Sex: Male
  Weight: 97 kg

DRUGS (1)
  1. KETEK [Suspect]
     Route: 048
     Dates: start: 20110608, end: 20110608

REACTIONS (3)
  - DIARRHOEA [None]
  - CONFUSIONAL STATE [None]
  - ASTHENIA [None]
